FAERS Safety Report 19514481 (Version 4)
Quarter: 2021Q4

REPORT INFORMATION
  Report Type: Spontaneous
  Country: US (occurrence: US)
  Receive Date: 20210709
  Receipt Date: 20211022
  Transmission Date: 20220304
  Serious: Yes (Other)
  Sender: FDA-Public Use
  Company Number: US-ORGANON-O2107USA000584

PATIENT
  Age: 36 Year
  Sex: Female

DRUGS (5)
  1. NEXPLANON [Suspect]
     Active Substance: ETONOGESTREL
     Indication: Contraception
     Dosage: 1 IMPLANT, LEFT ARM
     Dates: end: 20210513
  2. NEXPLANON [Suspect]
     Active Substance: ETONOGESTREL
     Indication: Contraception
     Dosage: 1 IMPLANT, IN RIGHT UPPER ARM, ONCE
     Dates: start: 20210505, end: 20210618
  3. BUPROPION HYDROCHLORIDE [Concomitant]
     Active Substance: BUPROPION HYDROCHLORIDE
     Dosage: UNK
  4. CEPHALEXIN HYDROCHLORIDE [Concomitant]
     Active Substance: CEPHALEXIN HYDROCHLORIDE
     Dosage: UNK
  5. METFORMIN [Concomitant]
     Active Substance: METFORMIN HYDROCHLORIDE
     Dosage: UNK

REACTIONS (6)
  - Device dislocation [Recovered/Resolved]
  - Implant site haemorrhage [Unknown]
  - Implant site pain [Unknown]
  - Implant site erythema [Unknown]
  - Device placement issue [Recovered/Resolved]
  - Overdose [Unknown]

NARRATIVE: CASE EVENT DATE: 20210101
